FAERS Safety Report 9639302 (Version 3)
Quarter: 2013Q4

REPORT INFORMATION
  Report Type: Report from Study
  Country: US (occurrence: US)
  Receive Date: 20131022
  Receipt Date: 20131101
  Transmission Date: 20140711
  Serious: Yes (Other)
  Sender: FDA-Public Use
  Company Number: US-ROCHE-1289691

PATIENT
  Age: 39 Year
  Sex: Female
  Weight: 90.35 kg

DRUGS (4)
  1. LUCENTIS [Suspect]
     Indication: RETINAL VEIN OCCLUSION
     Route: 050
     Dates: start: 20130906
  2. ALLEGRA [Concomitant]
  3. FLONASE [Concomitant]
  4. XANAX [Concomitant]

REACTIONS (2)
  - Burns third degree [Recovering/Resolving]
  - Visual acuity reduced [Not Recovered/Not Resolved]
